FAERS Safety Report 21931643 (Version 1)
Quarter: 2023Q1

REPORT INFORMATION
  Report Type: Spontaneous
  Country: US (occurrence: None)
  Receive Date: 20230130
  Receipt Date: 20230130
  Transmission Date: 20230418
  Serious: Yes (Disabling)
  Sender: FDA-Public Use
  Company Number: None

PATIENT
  Age: 56 Year
  Sex: Male
  Weight: 66 kg

DRUGS (4)
  1. VANCOMYCIN [Suspect]
     Active Substance: VANCOMYCIN
     Indication: Abscess
     Dosage: FREQUENCY : TWICE A DAY;?
     Route: 040
     Dates: start: 20221105, end: 20221107
  2. VANCOMYCIN [Suspect]
     Active Substance: VANCOMYCIN
     Indication: Osteitis
  3. PIPERACILLIN SODIUM\TAZOBACTAM SODIUM [Concomitant]
     Active Substance: PIPERACILLIN SODIUM\TAZOBACTAM SODIUM
     Dates: start: 20221105, end: 20221107
  4. IOPAMIDOL [Concomitant]
     Active Substance: IOPAMIDOL
     Dates: start: 20221105, end: 20221105

REACTIONS (3)
  - Acute kidney injury [None]
  - Chronic kidney disease [None]
  - Blood creatinine increased [None]

NARRATIVE: CASE EVENT DATE: 20221107
